FAERS Safety Report 9585703 (Version 2)
Quarter: 2013Q4

REPORT INFORMATION
  Report Type: Spontaneous
  Country: BR (occurrence: BR)
  Receive Date: 20131003
  Receipt Date: 20131003
  Transmission Date: 20140711
  Serious: Yes (Other)
  Sender: FDA-Public Use
  Company Number: BR-AMGEN-BRASP2012028950

PATIENT
  Age: 56 Year
  Sex: Female
  Weight: 62 kg

DRUGS (14)
  1. ENBREL [Suspect]
     Indication: ANKYLOSING SPONDYLITIS
     Dosage: 50 MG, WEEKLY
     Route: 058
     Dates: start: 201203, end: 201306
  2. ARADOIS [Concomitant]
     Indication: HYPERTENSION
     Dosage: 50 MG (ONE TABLET), ONCE A DAY
     Route: 048
  3. GUTTALAX [Concomitant]
     Dosage: 10 GTT, AS NEEDED
  4. MELOXICAM [Concomitant]
     Dosage: ONE TABLET (STRENGTH 7.5MG), ONCE A DAY
     Route: 048
  5. CYCLOBENZAPRINE [Concomitant]
     Dosage: UNK
  6. DIACEREIN [Concomitant]
     Dosage: UNK
  7. PARACETAMOL [Concomitant]
     Dosage: UNK
  8. DEFLAZACORT [Concomitant]
     Dosage: ONE TABLET (STRENGTH 10MG) ONCE A DAY
  9. FAMOTIDINE [Concomitant]
     Dosage: UNK
  10. NEOZINE                            /00038601/ [Concomitant]
     Dosage: UNK
  11. SERTRALINE [Concomitant]
     Dosage: UNK
  12. HIGROTON [Concomitant]
     Dosage: UNK
  13. RANITIDINE [Concomitant]
     Dosage: ONE TABLET (STRENGTH 20MG), ONCE A DAY
     Route: 048
  14. HYDROCHLOROTHIAZIDE [Concomitant]
     Dosage: 50 MG (ONE TABLET), ONCE A DAY
     Route: 048

REACTIONS (4)
  - Pain [Not Recovered/Not Resolved]
  - Drug ineffective [Unknown]
  - Arthropathy [Unknown]
  - Injection site erythema [Recovered/Resolved]
